FAERS Safety Report 18371957 (Version 1)
Quarter: 2020Q4

REPORT INFORMATION
  Report Type: Spontaneous
  Country: JP (occurrence: JP)
  Receive Date: 20201012
  Receipt Date: 20201012
  Transmission Date: 20210114
  Serious: Yes (Other)
  Sender: FDA-Public Use
  Company Number: JP-TEVA-2020-JP-006308J

PATIENT
  Sex: Male

DRUGS (2)
  1. EURODIN 1MG. TABLETS [Suspect]
     Active Substance: ESTAZOLAM
     Indication: PRODUCT USED FOR UNKNOWN INDICATION
     Route: 048
  2. CONSTAN 0.4MG.TABLETS [Suspect]
     Active Substance: ALPRAZOLAM
     Indication: PRODUCT USED FOR UNKNOWN INDICATION
     Route: 048

REACTIONS (6)
  - Supraventricular extrasystoles [Unknown]
  - Constipation [Unknown]
  - Headache [Unknown]
  - Irritable bowel syndrome [Unknown]
  - Chest discomfort [Unknown]
  - Arrhythmia [Unknown]
